FAERS Safety Report 24937697 (Version 1)
Quarter: 2025Q1

REPORT INFORMATION
  Report Type: Spontaneous
  Country: PL (occurrence: PL)
  Receive Date: 20250206
  Receipt Date: 20250206
  Transmission Date: 20250409
  Serious: Yes (Hospitalization, Other)
  Sender: AMGEN
  Company Number: PL-AMGEN-POLSP2023213914

PATIENT
  Age: 60 Year
  Sex: Female

DRUGS (4)
  1. VECTIBIX [Suspect]
     Active Substance: PANITUMUMAB
     Indication: Adenocarcinoma of colon
     Route: 065
     Dates: start: 20221205
  2. LEUCOVORIN [Suspect]
     Active Substance: LEUCOVORIN\LEUCOVORIN CALCIUM
     Indication: Adenocarcinoma of colon
     Route: 065
     Dates: start: 20221205
  3. FLUOROURACIL [Suspect]
     Active Substance: FLUOROURACIL
     Indication: Adenocarcinoma of colon
     Route: 065
     Dates: start: 20221205
  4. OXALIPLATIN [Suspect]
     Active Substance: OXALIPLATIN
     Indication: Adenocarcinoma of colon
     Route: 065
     Dates: start: 20221205

REACTIONS (18)
  - Pneumonia [Unknown]
  - Rash erythematous [Unknown]
  - Fungal infection [Unknown]
  - Nail fold inflammation [Recovering/Resolving]
  - Transaminases increased [Unknown]
  - Petechiae [Unknown]
  - Asthenia [Unknown]
  - Diarrhoea [Unknown]
  - Rash pustular [Recovering/Resolving]
  - Leukocytosis [Unknown]
  - Anaemia [Unknown]
  - Vomiting [Unknown]
  - Nausea [Unknown]
  - Neutrophil count increased [Unknown]
  - Oral candidiasis [Unknown]
  - Skin lesion [Unknown]
  - Device related infection [Unknown]
  - Infection [Unknown]

NARRATIVE: CASE EVENT DATE: 20221214
